FAERS Safety Report 6926215-6 (Version None)
Quarter: 2010Q3

REPORT INFORMATION
  Report Type: 
  Country: None (occurrence: None)
  Receive Date: 20100813
  Receipt Date: 20100813
  Transmission Date: 20110219
  Serious: Yes (Life-Threatening, Hospitalization, Other)
  Sender: FDA-Public Use
  Company Number: None

PATIENT
  Age: 34 Year
  Sex: Female
  Weight: 75.7507 kg

DRUGS (2)
  1. LAMOTRIGINE [Suspect]
     Indication: BIPOLAR DISORDER
     Dosage: 25MGX7D; 50MGX7D, 75MGX7D ONCE DAILY PO
     Route: 048
     Dates: start: 20100705, end: 20100725
  2. LAMOTRIGINE [Suspect]
     Indication: BIPOLAR DISORDER
     Dosage: 100 MG ONCE DAILY PO
     Route: 048
     Dates: start: 20100726, end: 20100813

REACTIONS (7)
  - DYSSTASIA [None]
  - LYMPHADENOPATHY [None]
  - MIGRAINE [None]
  - MUSCULOSKELETAL STIFFNESS [None]
  - NECK PAIN [None]
  - PYREXIA [None]
  - UNEVALUABLE EVENT [None]
